FAERS Safety Report 14701966 (Version 6)
Quarter: 2018Q2

REPORT INFORMATION
  Report Type: Spontaneous
  Country: DE (occurrence: DE)
  Receive Date: 20180331
  Receipt Date: 20180613
  Transmission Date: 20180711
  Serious: Yes (Other)
  Sender: FDA-Public Use
  Company Number: DE-AUROBINDO-AUR-APL-2018-017933

PATIENT

DRUGS (17)
  1. BISOPROLOL FILM-COATED TABLETS [Suspect]
     Active Substance: BISOPROLOL
     Indication: HYPERTENSION
     Dosage: UNK
     Route: 064
  2. XIPAMIDE [Suspect]
     Active Substance: XIPAMIDE
     Dosage: MATERNAL DOSE UNKNOWN ()
     Route: 064
  3. COLESTILAN [Suspect]
     Active Substance: COLESTILAN CHLORIDE
     Dosage: MATERNAL DOSE UNKNOWN ()
     Route: 064
  4. XIPAMIDE [Suspect]
     Active Substance: XIPAMIDE
     Indication: PRODUCT USED FOR UNKNOWN INDICATION
     Dosage: MATERNAL DOSE UNKNOWN ()
     Route: 064
  5. CANDESARTAN. [Suspect]
     Active Substance: CANDESARTAN
     Dosage: UNK ()
     Route: 064
  6. XIPAMIDE [Suspect]
     Active Substance: XIPAMIDE
     Dosage: MATERNAL DOSE UNKNOWN ()
     Route: 064
  7. SODIUM HYDROGEN CARBONATE [Suspect]
     Active Substance: SODIUM BICARBONATE
     Indication: FOETAL EXPOSURE DURING PREGNANCY
     Dosage: MATERNAL DOSE UNKNOWN ()
     Route: 064
  8. SODIUM HYDROGEN CARBONATE [Suspect]
     Active Substance: SODIUM BICARBONATE
     Dosage: MATERNAL DOSE UNKNOWN ()
     Route: 064
  9. COLESTILAN [Suspect]
     Active Substance: COLESTILAN CHLORIDE
     Dosage: MATERNAL DOSE UNKNOWN ()
     Route: 064
  10. SODIUM HYDROGEN CARBONATE [Suspect]
     Active Substance: SODIUM BICARBONATE
     Dosage: MATERNAL DOSE UNKNOWN ()
     Route: 064
  11. CANDESARTAN. [Suspect]
     Active Substance: CANDESARTAN
     Dosage: UNK ()
     Route: 064
  12. XIPAMIDE [Suspect]
     Active Substance: XIPAMIDE
     Dosage: MATERNAL DOSE UNKNOWN ()
     Route: 064
  13. COLESTILAN [Suspect]
     Active Substance: COLESTILAN CHLORIDE
     Dosage: MATERNAL DOSE UNKNOWN ()
     Route: 064
  14. CANDESARTAN. [Suspect]
     Active Substance: CANDESARTAN
     Indication: HYPERTENSION
     Dosage: UNK
     Route: 064
  15. CANDESARTAN. [Suspect]
     Active Substance: CANDESARTAN
     Dosage: UNK ()
     Route: 064
  16. COLESTILAN [Suspect]
     Active Substance: COLESTILAN CHLORIDE
     Indication: FOETAL EXPOSURE DURING PREGNANCY
     Dosage: MATERNAL DOSE UNKNOWN ()
     Route: 064
  17. SODIUM BICARBONATE. [Concomitant]
     Active Substance: SODIUM BICARBONATE
     Indication: PRODUCT USED FOR UNKNOWN INDICATION
     Dosage: UNK
     Route: 064

REACTIONS (8)
  - Low birth weight baby [Recovering/Resolving]
  - Hypotension [Unknown]
  - Foetal exposure during pregnancy [Recovered/Resolved]
  - Oligohydramnios [Unknown]
  - Neonatal hypotension [Recovered/Resolved]
  - Renal failure neonatal [Recovered/Resolved]
  - Acute kidney injury [Recovered/Resolved]
  - Premature baby [Recovered/Resolved]
